FAERS Safety Report 7069129-6 (Version None)
Quarter: 2010Q4

REPORT INFORMATION
  Report Type: 
  Country: None (occurrence: None)
  Receive Date: 20101028
  Receipt Date: 20101019
  Transmission Date: 20110411
  Serious: Yes (Other)
  Sender: FDA-Public Use
  Company Number: A0887684A

PATIENT
  Age: 60 Year
  Sex: Female

DRUGS (2)
  1. VENTOLIN [Suspect]
     Indication: ASTHMA
     Route: 065
  2. ACETAMINOPHEN [Concomitant]
     Indication: PAIN
     Route: 065

REACTIONS (11)
  - ASTHMA [None]
  - CHEST DISCOMFORT [None]
  - DRUG HYPERSENSITIVITY [None]
  - DYSPNOEA [None]
  - H1N1 INFLUENZA [None]
  - HYPERSENSITIVITY [None]
  - IMMUNE SYSTEM DISORDER [None]
  - LUNG DISORDER [None]
  - PAIN [None]
  - PULMONARY CONGESTION [None]
  - WHEEZING [None]
